FAERS Safety Report 24737422 (Version 1)
Quarter: 2024Q4

REPORT INFORMATION
  Report Type: Spontaneous
  Country: US (occurrence: None)
  Receive Date: 20241213
  Receipt Date: 20241213
  Transmission Date: 20250115
  Serious: Yes (Hospitalization)
  Sender: Public
  Company Number: None

PATIENT
  Sex: Male

DRUGS (1)
  1. TACROLIMUS [Suspect]
     Active Substance: TACROLIMUS
     Indication: Renal transplant
     Dosage: FREQ: TAKE 1 CAPSULE (0.5 MG TOTAL) BY MOUTH EVERY 12 (TWELVE) HOURS.
     Route: 048
     Dates: start: 20230322

REACTIONS (1)
  - Hospitalisation [None]
